FAERS Safety Report 25208188 (Version 1)
Quarter: 2025Q2

REPORT INFORMATION
  Report Type: Spontaneous
  Country: US (occurrence: US)
  Receive Date: 20250417
  Receipt Date: 20250417
  Transmission Date: 20250717
  Serious: No
  Sender: BLUEPRINT MEDICINES
  Company Number: US-Blueprint Medicines Corporation-2025-AER-00729

PATIENT
  Age: 52 Year
  Sex: Male

DRUGS (1)
  1. AYVAKIT [Suspect]
     Active Substance: AVAPRITINIB
     Indication: Malignant mast cell neoplasm
     Route: 065
     Dates: start: 20230920

REACTIONS (5)
  - White blood cell count decreased [Unknown]
  - Brain fog [Unknown]
  - Disturbance in attention [Unknown]
  - Aphasia [Unknown]
  - Tryptase increased [Unknown]

NARRATIVE: CASE EVENT DATE: 20241001
